FAERS Safety Report 9016160 (Version 1)
Quarter: 2013Q1

REPORT INFORMATION
  Report Type: Report from Study
  Country: US (occurrence: US)
  Receive Date: 20130116
  Receipt Date: 20130116
  Transmission Date: 20140127
  Serious: Yes (Hospitalization)
  Sender: FDA-Public Use
  Company Number: US-ACTELION-A-US2012-76090

PATIENT
  Age: 54 Year
  Sex: Female

DRUGS (5)
  1. VELETRI [Suspect]
     Indication: PULMONARY ARTERIAL HYPERTENSION
     Dosage: 20 NG/KG, PER MIN
     Route: 042
     Dates: start: 20101124
  2. LETAIRIS [Concomitant]
  3. SILDENAFIL [Concomitant]
  4. COUMADIN [Concomitant]
  5. ALLOPURINOL [Concomitant]

REACTIONS (6)
  - Pneumonia [Unknown]
  - Fluid retention [Unknown]
  - Headache [Unknown]
  - Local swelling [Unknown]
  - Malaise [Unknown]
  - Pain in extremity [Unknown]
